FAERS Safety Report 14777733 (Version 3)
Quarter: 2018Q2

REPORT INFORMATION
  Report Type: Spontaneous
  Country: PR (occurrence: PR)
  Receive Date: 20180419
  Receipt Date: 20180611
  Transmission Date: 20180711
  Serious: Yes (Other)
  Sender: FDA-Public Use
  Company Number: PR-PFIZER INC-2018159888

PATIENT
  Age: 79 Year
  Sex: Male
  Weight: 63.49 kg

DRUGS (1)
  1. SUTENT [Suspect]
     Active Substance: SUNITINIB MALATE
     Indication: RENAL CANCER METASTATIC
     Dosage: 50 MG, CYCLIC (DAILY FOR 28 DAYS 2 WEEK REST/DAILY FOR 28 DAYS/14 OFF)
     Route: 048
     Dates: start: 20180412

REACTIONS (7)
  - Pruritus [Unknown]
  - Haemoglobin decreased [Unknown]
  - Platelet count decreased [Unknown]
  - Hepatic enzyme increased [Unknown]
  - Decreased appetite [Unknown]
  - Erythema [Unknown]
  - Rectal haemorrhage [Unknown]
